FAERS Safety Report 7821690-7 (Version None)
Quarter: 2011Q4

REPORT INFORMATION
  Report Type: 
  Country: None (occurrence: None)
  Receive Date: 20111018
  Receipt Date: 20111003
  Transmission Date: 20120403
  Serious: No
  Sender: FDA-Public Use
  Company Number: US-ROXANE LABORATORIES, INC.-2011-RO-01240RO

PATIENT
  Sex: Male
  Weight: 74 kg

DRUGS (4)
  1. ABILIFY [Concomitant]
     Indication: BIPOLAR DISORDER
     Dosage: 20 MG
     Dates: start: 20050101
  2. LITHIUM CARBONATE [Suspect]
     Indication: BIPOLAR DISORDER
     Dosage: 900 MG
     Route: 048
     Dates: start: 20060301
  3. BENZTROPINE MESYLATE [Concomitant]
     Indication: BIPOLAR DISORDER
     Dosage: 1 MG
     Dates: start: 20050101
  4. LEXAPRO [Concomitant]
     Dosage: 10 MG
     Dates: start: 20050101

REACTIONS (4)
  - TOOTH EROSION [None]
  - TOOTH INJURY [None]
  - TOOTHACHE [None]
  - SENSITIVITY OF TEETH [None]
